FAERS Safety Report 18138429 (Version 1)
Quarter: 2020Q3

REPORT INFORMATION
  Report Type: Spontaneous
  Country: IT (occurrence: IT)
  Receive Date: 20200812
  Receipt Date: 20200812
  Transmission Date: 20201103
  Serious: Yes (Death, Hospitalization)
  Sender: FDA-Public Use
  Company Number: IT-AUROBINDO-AUR-APL-2020-038462

PATIENT
  Age: 45 Year
  Sex: Male
  Weight: 80 kg

DRUGS (11)
  1. ALBUMIN (HUMAN) [Suspect]
     Active Substance: ALBUMIN HUMAN
     Indication: SEPTIC SHOCK
     Dosage: 120 GRAM
     Route: 042
  2. NOREPINEPHRINE. [Suspect]
     Active Substance: NOREPINEPHRINE
     Indication: SEPTIC SHOCK
     Dosage: 0.6 MCG/KG/MIN
     Route: 065
  3. MEROPENEM POWDER FOR SOLUTION FOR INFUSION [Suspect]
     Active Substance: MEROPENEM
     Indication: ANTIBIOTIC THERAPY
  4. GENTAMICIN. [Suspect]
     Active Substance: GENTAMICIN
     Indication: SEPTIC SHOCK
     Dosage: 240 MILLIGRAM, ONCE A DAY, (FOR THREE DAYS)
     Route: 042
  5. TIGECYCLINE. [Suspect]
     Active Substance: TIGECYCLINE
     Indication: SEPTIC SHOCK
     Dosage: 100 MILLIGRAM, TWO TIMES A DAY
     Route: 065
  6. MEROPENEM POWDER FOR SOLUTION FOR INFUSION [Suspect]
     Active Substance: MEROPENEM
     Indication: SEPTIC SHOCK
     Dosage: 1 GRAM, FOUR TIMES/DAY
     Route: 042
  7. VASOPRESSIN. [Suspect]
     Active Substance: VASOPRESSIN
     Indication: SEPTIC SHOCK
     Dosage: UP TO 0.02 U/KG/H
     Route: 065
  8. VANCOMYCIN [Suspect]
     Active Substance: VANCOMYCIN
     Indication: ANTIBIOTIC PROPHYLAXIS
     Dosage: 2 GRAM, INFUSED 1 HOUR BEFORE SURGICAL ESCHAROTOMIES
     Route: 042
  9. COLISTIN [Suspect]
     Active Substance: COLISTIN
     Indication: SEPTIC SHOCK
     Dosage: 9 MILLION INTERNATIONAL UNIT, LOADING DOSE
     Route: 042
  10. COLISTIN [Suspect]
     Active Substance: COLISTIN
     Dosage: 1 MILLION INTERNATIONAL UNIT, TWO TIMES A DAY
     Route: 042
  11. AMOXICILLIN SODIUM;CLAVULANIC ACID [Suspect]
     Active Substance: AMOXICILLIN\CLAVULANIC ACID
     Indication: ANTIBIOTIC PROPHYLAXIS
     Dosage: 2.2 GRAM, FOUR TIMES/DAY, (IN THE FIRST 72 HRS)
     Route: 042

REACTIONS (1)
  - Drug ineffective [Fatal]
